FAERS Safety Report 8435205-6 (Version None)
Quarter: 2012Q2

REPORT INFORMATION
  Report Type: 
  Country: None (occurrence: None)
  Receive Date: 20120614
  Receipt Date: 20120608
  Transmission Date: 20120825
  Serious: Yes (Life-Threatening, Hospitalization, Disabling, Other)
  Sender: FDA-Public Use
  Company Number: PHHY2012FR025319

PATIENT
  Sex: Female
  Weight: 50 kg

DRUGS (8)
  1. BACLOFEN [Concomitant]
     Indication: MUSCLE SPASTICITY
     Dosage: 60 MG, DAILY
  2. PAROXETINE HCL [Concomitant]
     Indication: DEPRESSION
     Dosage: 30 MG, UNK
  3. TRAMADOL HCL [Concomitant]
     Indication: NEURALGIA
     Dosage: 100 MG, QD
  4. ESOMEPRAZOLE [Concomitant]
     Indication: DYSPEPSIA
     Dosage: 40 MG, QD
  5. METEOXANE [Concomitant]
     Indication: CONSTIPATION
     Dosage: 3 DF, DAILY
  6. GAVISCON [Concomitant]
     Indication: DYSPEPSIA
     Dosage: 2 DF, DAILY
  7. GILENYA [Suspect]
     Indication: RELAPSING-REMITTING MULTIPLE SCLEROSIS
     Dosage: 0.5 MG, QD
     Route: 048
     Dates: start: 20120306, end: 20120315
  8. TROSPIUM CHLORIDE [Concomitant]
     Indication: NEUROGENIC BLADDER
     Dosage: 20 MG, BID

REACTIONS (29)
  - ACUTE CORONARY SYNDROME [None]
  - INFLAMMATION [None]
  - CENTRAL NERVOUS SYSTEM LESION [None]
  - DIZZINESS [None]
  - PYREXIA [None]
  - HEART RATE INCREASED [None]
  - EJECTION FRACTION DECREASED [None]
  - ELECTROCARDIOGRAM ABNORMAL [None]
  - BRAIN HYPOXIA [None]
  - LOSS OF CONSCIOUSNESS [None]
  - PROCALCITONIN INCREASED [None]
  - ANTEROGRADE AMNESIA [None]
  - DISTURBANCE IN ATTENTION [None]
  - STRESS CARDIOMYOPATHY [None]
  - CARDIOGENIC SHOCK [None]
  - NAUSEA [None]
  - VOMITING [None]
  - CSF LACTATE INCREASED [None]
  - MALAISE [None]
  - TROPONIN INCREASED [None]
  - FALL [None]
  - BLOOD PRESSURE INCREASED [None]
  - RESPIRATORY RATE INCREASED [None]
  - CARDIAC FAILURE ACUTE [None]
  - STATUS EPILEPTICUS [None]
  - CARDIAC OUTPUT DECREASED [None]
  - C-REACTIVE PROTEIN INCREASED [None]
  - KORSAKOFF'S SYNDROME [None]
  - CSF GLUCOSE DECREASED [None]
